FAERS Safety Report 14831112 (Version 1)
Quarter: 2018Q2

REPORT INFORMATION
  Report Type: Report from Study
  Country: CO (occurrence: CO)
  Receive Date: 20180501
  Receipt Date: 20180501
  Transmission Date: 20180711
  Serious: Yes (Other)
  Sender: FDA-Public Use
  Company Number: CO-REGENERON PHARMACEUTICALS, INC.-2018-13093

PATIENT

DRUGS (10)
  1. EYLEA [Suspect]
     Active Substance: AFLIBERCEPT
     Dosage: SEVENTH APPLICATION (LEFT EYE)
     Dates: start: 20160817, end: 20160817
  2. EYLEA [Suspect]
     Active Substance: AFLIBERCEPT
     Indication: AGE-RELATED MACULAR DEGENERATION
     Dosage: FIRST APPLICATION
     Dates: start: 20150710, end: 20150710
  3. EYLEA [Suspect]
     Active Substance: AFLIBERCEPT
     Dosage: SECOND APPLICATION
     Dates: start: 20151010, end: 20151010
  4. EYLEA [Suspect]
     Active Substance: AFLIBERCEPT
     Dosage: FOURTH APPLICATION
     Dates: start: 20160227, end: 20160227
  5. EYLEA [Suspect]
     Active Substance: AFLIBERCEPT
     Dosage: SIXTH APPLICATION
     Dates: start: 20160627, end: 20160627
  6. LOSARTAN. [Concomitant]
     Active Substance: LOSARTAN
     Indication: HYPERTENSION
     Dosage: 100 MG, QD
  7. EYLEA [Suspect]
     Active Substance: AFLIBERCEPT
     Dosage: 2 DOSES OF EYLEA (ONE IN EACH EYE)
     Dates: start: 20180406
  8. LEVOTHYROXINE. [Concomitant]
     Active Substance: LEVOTHYROXINE
     Indication: HYPERTHYROIDISM
  9. EYLEA [Suspect]
     Active Substance: AFLIBERCEPT
     Dosage: THIRD APPLICATION
     Dates: start: 20151210, end: 20151210
  10. EYLEA [Suspect]
     Active Substance: AFLIBERCEPT
     Dosage: FIFTH APPLICATION
     Dates: start: 20160427, end: 20160427

REACTIONS (4)
  - Inappropriate schedule of drug administration [Not Recovered/Not Resolved]
  - Cataract [Not Recovered/Not Resolved]
  - Intraocular lens implant [Recovering/Resolving]
  - Retinal haemorrhage [Not Recovered/Not Resolved]

NARRATIVE: CASE EVENT DATE: 20180409
